FAERS Safety Report 7346324-X (Version None)
Quarter: 2011Q1

REPORT INFORMATION
  Report Type: 
  Country: None (occurrence: None)
  Receive Date: 20110301
  Receipt Date: 20110218
  Transmission Date: 20110831
  Serious: Yes (Other)
  Sender: FDA-Public Use
  Company Number: 2011SP008334

PATIENT
  Age: 38 Year
  Sex: Female
  Weight: 100 kg

DRUGS (2)
  1. CERAZETTE (DESOGESTREL) [Suspect]
     Indication: UTERINE LEIOMYOMA
     Dosage: PO
     Route: 048
     Dates: start: 20110211
  2. CERAZETTE (DESOGESTREL) [Suspect]
     Indication: OVARIAN CYST
     Dosage: PO
     Route: 048
     Dates: start: 20110211

REACTIONS (4)
  - ANAEMIA [None]
  - HYPERTENSION [None]
  - MENORRHAGIA [None]
  - MENSTRUATION IRREGULAR [None]
